FAERS Safety Report 8964047 (Version 3)
Quarter: 2013Q2

REPORT INFORMATION
  Report Type: Spontaneous
  Country: US (occurrence: US)
  Receive Date: 20121214
  Receipt Date: 20130423
  Transmission Date: 20140414
  Serious: Yes (Hospitalization)
  Sender: FDA-Public Use
  Company Number: US-BAYER-2012-129264

PATIENT
  Age: 38 Year
  Sex: Female
  Weight: 79.37 kg

DRUGS (8)
  1. YAZ [Suspect]
     Indication: PREMENSTRUAL SYNDROME
     Dosage: UNK
     Dates: start: 2003, end: 2004
  2. YASMIN [Suspect]
     Indication: PREMENSTRUAL SYNDROME
     Dosage: UNK
     Dates: start: 2003, end: 2004
  3. PERCOCET [Concomitant]
     Route: 048
  4. NEXIUM [Concomitant]
     Route: 048
  5. ZOFRAN [Concomitant]
     Route: 048
  6. AMBIEN [Concomitant]
     Route: 048
  7. LEXAPRO [Concomitant]
     Route: 048
  8. MAXALT [Concomitant]
     Route: 048

REACTIONS (10)
  - Deep vein thrombosis [None]
  - Cholecystectomy [None]
  - Pain [None]
  - Injury [None]
  - General physical health deterioration [None]
  - Emotional distress [None]
  - Anxiety [None]
  - Anhedonia [None]
  - Pain [None]
  - Cholecystitis chronic [None]
